FAERS Safety Report 9066746 (Version 2)
Quarter: 2013Q2

REPORT INFORMATION
  Report Type: Spontaneous
  Country: US (occurrence: US)
  Receive Date: 20130214
  Receipt Date: 20130509
  Transmission Date: 20140414
  Serious: Yes (Hospitalization)
  Sender: FDA-Public Use
  Company Number: US-GLAXOSMITHKLINE-A1010154A

PATIENT
  Age: 58 Year
  Sex: Male

DRUGS (5)
  1. ADVAIR [Suspect]
     Indication: CHRONIC OBSTRUCTIVE PULMONARY DISEASE
     Dosage: 1PUFF TWICE PER DAY
     Route: 055
     Dates: start: 200608
  2. VENTOLIN [Suspect]
     Indication: CHRONIC OBSTRUCTIVE PULMONARY DISEASE
     Dosage: 2SPR SEVEN TIMES PER DAY
     Route: 055
  3. MORPHINE SULFATE [Concomitant]
  4. INSULIN [Concomitant]
  5. OXYGEN [Concomitant]
     Indication: CHRONIC OBSTRUCTIVE PULMONARY DISEASE

REACTIONS (6)
  - Cardiac failure congestive [Unknown]
  - Pericardial effusion [Unknown]
  - Bronchitis [Recovering/Resolving]
  - Dyspnoea [Recovering/Resolving]
  - Prescribed overdose [Unknown]
  - Drug ineffective [Unknown]
